FAERS Safety Report 8583902 (Version 3)
Quarter: 2012Q4

REPORT INFORMATION
  Report Type: Report from Study
  Country: US (occurrence: US)
  Receive Date: 20120529
  Receipt Date: 20120920
  Transmission Date: 20130627
  Serious: Yes (Death, Congenital Anomaly)
  Sender: FDA-Public Use
  Company Number: US-ROCHE-1072259

PATIENT
  Sex: Female

DRUGS (1)
  1. INVIRASE [Suspect]
     Indication: ANTIVIRAL TREATMENT
     Route: 064
     Dates: start: 20111207

REACTIONS (8)
  - Respiratory distress [Fatal]
  - Congenital eye disorder [Unknown]
  - Gaze palsy [Unknown]
  - Talipes [Unknown]
  - Finger deformity [Unknown]
  - Hepatosplenomegaly [Unknown]
  - Trisomy 21 [Unknown]
  - Maternal exposure timing unspecified [Unknown]
